FAERS Safety Report 9366546 (Version 2)
Quarter: 2013Q3

REPORT INFORMATION
  Report Type: Spontaneous
  Country: US (occurrence: US)
  Receive Date: 20130625
  Receipt Date: 20130710
  Transmission Date: 20140515
  Serious: No
  Sender: FDA-Public Use
  Company Number: US-009507513-1306USA009047

PATIENT
  Age: 64 Year
  Sex: Female
  Weight: 67.12 kg

DRUGS (2)
  1. CLARITIN [Suspect]
     Indication: LACRIMATION INCREASED
     Dosage: 10 MG, QD
     Route: 048
     Dates: start: 201302, end: 201302
  2. CLARITIN [Suspect]
     Indication: THROAT IRRITATION

REACTIONS (1)
  - Drug ineffective [Unknown]
